FAERS Safety Report 7775251-9 (Version None)
Quarter: 2011Q3

REPORT INFORMATION
  Report Type: 
  Country: None (occurrence: None)
  Receive Date: 20110923
  Receipt Date: 20101216
  Transmission Date: 20111222
  Serious: No
  Sender: FDA-Public Use
  Company Number: US-BRISTOL-MYERS SQUIBB COMPANY-15446735

PATIENT
  Sex: Male

DRUGS (1)
  1. MEGACE [Suspect]
     Dosage: 1 DF: 1TSP/D AND HAD INCREASED TO 2TSP/D.

REACTIONS (1)
  - FLATULENCE [None]
